FAERS Safety Report 12701789 (Version 1)
Quarter: 2016Q3

REPORT INFORMATION
  Report Type: Spontaneous
  Country: US (occurrence: None)
  Receive Date: 20160830
  Receipt Date: 20160830
  Transmission Date: 20161109
  Serious: Yes (Life-Threatening)
  Sender: FDA-Public Use
  Company Number: None

PATIENT
  Age: 61 Year
  Sex: Female
  Weight: 133.7 kg

DRUGS (2)
  1. HEPARIN [Suspect]
     Active Substance: HEPARIN SODIUM
     Indication: PULMONARY EMBOLISM
     Dosage: HEPARIN 10 IU/KG INTRAVENOUS DRIP
     Route: 041
     Dates: start: 20160311, end: 20160312
  2. ALTEPLASE, 10MG/250ML [Suspect]
     Active Substance: ALTEPLASE
     Indication: PULMONARY EMBOLISM
     Route: 042
     Dates: start: 20160311, end: 20160311

REACTIONS (3)
  - Tachycardia [None]
  - Intra-abdominal haemorrhage [None]
  - Hypotension [None]

NARRATIVE: CASE EVENT DATE: 20160312
